FAERS Safety Report 6256445-0 (Version None)
Quarter: 2009Q3

REPORT INFORMATION
  Report Type: 
  Country: None (occurrence: None)
  Receive Date: 20090706
  Receipt Date: 20090701
  Transmission Date: 20100115
  Serious: Yes (Death, Life-Threatening)
  Sender: FDA-Public Use
  Company Number: JP-JNJFOC-20090700999

PATIENT
  Sex: Female

DRUGS (11)
  1. DUROTEP MT PATCH [Suspect]
     Route: 062
  2. DUROTEP MT PATCH [Suspect]
     Indication: CANCER PAIN
     Route: 062
  3. LEVOCABASTINE HYDROCHLORIDE [Concomitant]
     Indication: CONJUNCTIVITIS
     Route: 031
  4. BROTIZOLAM [Concomitant]
     Indication: INSOMNIA
     Route: 048
  5. LOXONIN [Concomitant]
     Indication: ANALGESIC THERAPY
     Route: 048
  6. PANPYOTIN [Concomitant]
     Indication: CONSTIPATION
     Route: 048
  7. HEAVY MAGNESIUM OXIDE [Concomitant]
     Indication: CONSTIPATION
  8. GASTER D [Concomitant]
     Indication: GASTRITIS
     Route: 048
  9. ADONA [Concomitant]
     Route: 048
  10. SERENACE [Concomitant]
     Indication: DELIRIUM
  11. SCOPOLAMINE [Concomitant]

REACTIONS (6)
  - ANAEMIA [None]
  - DRUG PRESCRIBING ERROR [None]
  - OVARIAN CANCER [None]
  - RENAL FAILURE [None]
  - RESPIRATORY FAILURE [None]
  - UTERINE CANCER [None]
